FAERS Safety Report 17151472 (Version 3)
Quarter: 2020Q1

REPORT INFORMATION
  Report Type: Spontaneous
  Country: US (occurrence: US)
  Receive Date: 20191213
  Receipt Date: 20200309
  Transmission Date: 20200409
  Serious: Yes (Hospitalization, Other)
  Sender: FDA-Public Use
  Company Number: US-009507513-1912USA004920

PATIENT
  Age: 84 Year

DRUGS (1)
  1. TICE BCG [Suspect]
     Active Substance: BACILLUS CALMETTE-GUERIN SUBSTRAIN TICE LIVE ANTIGEN
     Indication: BLADDER CANCER
     Dosage: 50 MG/ 1 DOSE WEEKLY FOR 3 WEEKS
     Route: 043
     Dates: start: 201901, end: 201902

REACTIONS (3)
  - Acute kidney injury [Unknown]
  - Disseminated Bacillus Calmette-Guerin infection [Unknown]
  - Adverse event [Unknown]

NARRATIVE: CASE EVENT DATE: 2019
